FAERS Safety Report 10232442 (Version 1)
Quarter: 2014Q2

REPORT INFORMATION
  Report Type: Report from Study
  Country: LB (occurrence: LB)
  Receive Date: 20140612
  Receipt Date: 20140612
  Transmission Date: 20141212
  Serious: Yes (Hospitalization)
  Sender: FDA-Public Use
  Company Number: PHHY2014LB072213

PATIENT
  Age: 78 Year
  Sex: Female

DRUGS (5)
  1. ACLASTA [Suspect]
     Dosage: UNK
     Route: 042
  2. BETASERC [Concomitant]
     Dosage: 1 DF
     Route: 048
  3. TRITACE [Concomitant]
     Dosage: 10 MG
     Route: 048
  4. EURO-D [Concomitant]
     Dosage: 10000 U
     Route: 048
  5. OSTRONG [Concomitant]
     Dosage: 1 DF
     Route: 048

REACTIONS (4)
  - Deep vein thrombosis [Recovering/Resolving]
  - Pain in extremity [Recovered/Resolved]
  - Peripheral swelling [Recovered/Resolved]
  - Muscular weakness [Unknown]
